FAERS Safety Report 19820467 (Version 1)
Quarter: 2021Q3

REPORT INFORMATION
  Report Type: Spontaneous
  Country: US (occurrence: US)
  Receive Date: 20210911
  Receipt Date: 20210911
  Transmission Date: 20211014
  Serious: Yes (Other)
  Sender: FDA-Public Use
  Company Number: None

PATIENT
  Age: 52 Year
  Sex: Female
  Weight: 60.75 kg

DRUGS (7)
  1. MULTIVITAMIN DHEA [Concomitant]
  2. SINGULAIR [Suspect]
     Active Substance: MONTELUKAST SODIUM
     Indication: BREAST PROSTHESIS USER
     Dosage: ?          QUANTITY:1 TABLET(S);?
     Route: 048
     Dates: start: 20210901, end: 20210910
  3. ADDERALL [Concomitant]
     Active Substance: AMPHETAMINE ASPARTATE\AMPHETAMINE SULFATE\DEXTROAMPHETAMINE SACCHARATE\DEXTROAMPHETAMINE SULFATE
  4. VIVISCAL [Concomitant]
  5. PERCOCET [Concomitant]
     Active Substance: ACETAMINOPHEN\OXYCODONE HYDROCHLORIDE
  6. AMBIEN [Concomitant]
     Active Substance: ZOLPIDEM TARTRATE
  7. ZANAFLEX [Concomitant]
     Active Substance: TIZANIDINE HYDROCHLORIDE

REACTIONS (7)
  - Swelling face [None]
  - Oral mucosal eruption [None]
  - Eye swelling [None]
  - Swollen tongue [None]
  - Dysphagia [None]
  - Rash erythematous [None]
  - Skin exfoliation [None]

NARRATIVE: CASE EVENT DATE: 20210911
